FAERS Safety Report 4818655-6 (Version None)
Quarter: 2005Q4

REPORT INFORMATION
  Report Type: 
  Country: None (occurrence: None)
  Receive Date: 20051102
  Receipt Date: 20051026
  Transmission Date: 20060501
  Serious: Yes (Hospitalization)
  Sender: FDA-Public Use
  Company Number: US-MERCK-0510USA09328

PATIENT
  Age: 43 Year
  Sex: Female

DRUGS (3)
  1. VIOXX [Suspect]
     Indication: ARTHRITIS
     Route: 048
     Dates: start: 19990701
  2. VIOXX [Suspect]
     Route: 048
     Dates: start: 19990701
  3. COZAAR [Concomitant]
     Route: 048

REACTIONS (4)
  - ACUTE MYOCARDIAL INFARCTION [None]
  - DEPRESSION [None]
  - DYSPNOEA [None]
  - SWELLING [None]
